FAERS Safety Report 4733446-2 (Version None)
Quarter: 2005Q3

REPORT INFORMATION
  Report Type: 
  Country: None (occurrence: None)
  Receive Date: 20050803
  Receipt Date: 20050726
  Transmission Date: 20060218
  Serious: Yes (Hospitalization)
  Sender: FDA-Public Use
  Company Number: US-JNJFOC-20050505011

PATIENT
  Sex: Male
  Weight: 84.82 kg

DRUGS (6)
  1. DURAGESIC-100 [Suspect]
     Route: 062
     Dates: start: 20020101, end: 20030101
  2. DURAGESIC-100 [Suspect]
     Route: 062
     Dates: start: 20020101, end: 20030101
  3. DURAGESIC-100 [Suspect]
     Route: 062
     Dates: start: 20020101, end: 20030101
  4. DURAGESIC-100 [Suspect]
     Route: 062
     Dates: start: 20020101, end: 20030101
  5. HYDROCODONE [Concomitant]
     Indication: PAIN
     Dosage: 7.5 MG/325, 6 IN 24 HOURS, ORAL
     Route: 048
     Dates: start: 20020101
  6. SOMA [Concomitant]
     Route: 048
     Dates: start: 20020101

REACTIONS (6)
  - DYSPNOEA [None]
  - HYPOVENTILATION [None]
  - PAIN [None]
  - RESPIRATORY RATE DECREASED [None]
  - SURGICAL PROCEDURE REPEATED [None]
  - THERAPEUTIC RESPONSE DECREASED [None]
